FAERS Safety Report 9798290 (Version 3)
Quarter: 2014Q3

REPORT INFORMATION
  Report Type: Spontaneous
  Country: US (occurrence: US)
  Receive Date: 20140106
  Receipt Date: 20140902
  Transmission Date: 20150326
  Serious: Yes (Life-Threatening, Other)
  Sender: FDA-Public Use
  Company Number: US-BAYER-2013-158702

PATIENT
  Age: 21 Year
  Sex: Male
  Weight: 90.7 kg

DRUGS (1)
  1. ALEVE [Suspect]
     Active Substance: NAPROXEN SODIUM
     Indication: BACK PAIN
     Dosage: 1 DF, UNK
     Route: 048
     Dates: end: 20131203

REACTIONS (15)
  - Tooth fracture [Not Recovered/Not Resolved]
  - Muscle twitching [Not Recovered/Not Resolved]
  - Dizziness [Recovered/Resolved]
  - Convulsion [Recovered/Resolved]
  - Toothache [Not Recovered/Not Resolved]
  - Laceration [Recovered/Resolved]
  - Cardiac arrest [Recovered/Resolved]
  - Pain in jaw [Not Recovered/Not Resolved]
  - Lip injury [Recovered/Resolved]
  - Cardiac disorder [None]
  - Fall [Recovered/Resolved]
  - Trismus [Not Recovered/Not Resolved]
  - Face injury [None]
  - Loss of consciousness [Recovered/Resolved]
  - Syncope [None]

NARRATIVE: CASE EVENT DATE: 20131203
